FAERS Safety Report 8996177 (Version 1)
Quarter: 2013Q1

REPORT INFORMATION
  Report Type: Spontaneous
  Country: US (occurrence: US)
  Receive Date: 20130103
  Receipt Date: 20130103
  Transmission Date: 20140127
  Serious: Yes (Hospitalization)
  Sender: FDA-Public Use
  Company Number: PHEH2012US025575

PATIENT
  Sex: Female

DRUGS (10)
  1. ZOMETA [Suspect]
     Indication: PLASMA CELL MYELOMA
  2. ASPIRIN [Concomitant]
  3. B COMPLEX [Concomitant]
  4. BIOTINE//BIOTIN [Concomitant]
  5. CALCIUM D                          /00944201/ [Concomitant]
  6. OCUVITE                            /01053801/ [Concomitant]
  7. OMEGA 100 [Concomitant]
  8. PREVACID [Concomitant]
  9. REVLIMID [Concomitant]
  10. VIT D [Concomitant]

REACTIONS (3)
  - Colitis ischaemic [Unknown]
  - Platelet count decreased [Unknown]
  - White blood cell count decreased [Unknown]
